FAERS Safety Report 16433561 (Version 1)
Quarter: 2019Q2

REPORT INFORMATION
  Report Type: Spontaneous
  Country: US (occurrence: US)
  Receive Date: 20190614
  Receipt Date: 20190614
  Transmission Date: 20190711
  Serious: No
  Sender: FDA-Public Use
  Company Number: US-JNJFOC-20151103299

PATIENT
  Sex: Male

DRUGS (6)
  1. RISPERDAL [Suspect]
     Active Substance: RISPERIDONE
     Indication: POST-TRAUMATIC STRESS DISORDER
     Dosage: 0.5 MG, 1 MG, 2 MG, 3 MG, 4 MG, 5 MG, 6 MG
     Route: 048
     Dates: start: 2000, end: 2006
  2. RISPERDAL [Suspect]
     Active Substance: RISPERIDONE
     Indication: MAJOR DEPRESSION
     Dosage: 0.5 MG, 1 MG, 2 MG, 3 MG, 4 MG, 5 MG, 6 MG
     Route: 048
     Dates: start: 2000, end: 2006
  3. DEPAKOTE [Suspect]
     Active Substance: DIVALPROEX SODIUM
     Indication: BIPOLAR I DISORDER
     Route: 048
  4. RISPERDAL [Suspect]
     Active Substance: RISPERIDONE
     Indication: SLEEP DISORDER
     Dosage: 0.5 MG, 1 MG, 2 MG, 3 MG, 4 MG, 5 MG, 6 MG
     Route: 048
     Dates: start: 2000, end: 2006
  5. RISPERDAL [Suspect]
     Active Substance: RISPERIDONE
     Indication: MOOD SWINGS
     Dosage: 0.5 MG, 1 MG, 2 MG, 3 MG, 4 MG, 5 MG, 6 MG
     Route: 048
     Dates: start: 2000, end: 2006
  6. RISPERDAL [Suspect]
     Active Substance: RISPERIDONE
     Indication: BIPOLAR I DISORDER
     Dosage: 0.5 MG, 1 MG, 2 MG, 3 MG, 4 MG, 5 MG, 6 MG
     Route: 048
     Dates: start: 2000, end: 2006

REACTIONS (5)
  - Hyperprolactinaemia [Unknown]
  - Somnolence [Unknown]
  - Galactorrhoea [Unknown]
  - Gynaecomastia [Unknown]
  - Abnormal weight gain [Unknown]

NARRATIVE: CASE EVENT DATE: 2001
